FAERS Safety Report 4545364-3 (Version None)
Quarter: 2005Q1

REPORT INFORMATION
  Report Type: 
  Country: None (occurrence: None)
  Receive Date: 20050103
  Receipt Date: 20041214
  Transmission Date: 20050727
  Serious: No
  Sender: FDA-Public Use
  Company Number: A01200406053

PATIENT
  Age: 65 Year
  Sex: Female

DRUGS (1)
  1. STILNOX - (ZOLPIDEM) - TABLET - UNIT DOSE : UNKNOWN [Suspect]
     Indication: INSOMNIA
     Dosage: 10 MG ONCE ORAL
     Route: 048
     Dates: start: 20030101, end: 20030101

REACTIONS (2)
  - AGGRESSION [None]
  - DELIRIUM [None]
